FAERS Safety Report 6998732-4 (Version None)
Quarter: 2010Q3

REPORT INFORMATION
  Report Type: 
  Country: None (occurrence: None)
  Receive Date: 20100920
  Receipt Date: 20100429
  Transmission Date: 20110219
  Serious: No
  Sender: FDA-Public Use
  Company Number: US-ASTRAZENECA-2010SE19798

PATIENT
  Age: 52 Year
  Sex: Female
  Weight: 69.4 kg

DRUGS (2)
  1. SEROQUEL [Suspect]
     Indication: SLEEP DISORDER
     Route: 048
     Dates: start: 20090901
  2. SEROQUEL [Suspect]
     Route: 048
     Dates: start: 20090901

REACTIONS (4)
  - HANGOVER [None]
  - HEADACHE [None]
  - INSOMNIA [None]
  - NAUSEA [None]
